FAERS Safety Report 12290931 (Version 2)
Quarter: 2016Q2

REPORT INFORMATION
  Report Type: Spontaneous
  Country: GR (occurrence: GR)
  Receive Date: 20160421
  Receipt Date: 20160421
  Transmission Date: 20160815
  Serious: Yes (Death, Life-Threatening, Hospitalization)
  Sender: FDA-Public Use
  Company Number: GR-ACTAVIS-2016-08231

PATIENT
  Age: 48 Year
  Sex: Female

DRUGS (10)
  1. CISATRACURIUM (UNKNOWN) [Suspect]
     Active Substance: CISATRACURIUM
     Indication: GENERAL ANAESTHESIA
     Dosage: UNK
     Route: 065
  2. ROPIVACAINE (UNKNOWN) [Suspect]
     Active Substance: ROPIVACAINE
     Indication: PREMEDICATION
     Dosage: UNK
     Route: 065
  3. CIMETIDINE. [Suspect]
     Active Substance: CIMETIDINE
     Indication: PREMEDICATION
     Dosage: UNK
     Route: 065
  4. LIDOCAINE (UNKNOWN) [Suspect]
     Active Substance: LIDOCAINE
     Indication: PREMEDICATION
     Dosage: UNK
     Route: 065
  5. PROPOFOL (UNKNOWN) [Suspect]
     Active Substance: PROPOFOL
     Indication: GENERAL ANAESTHESIA
     Dosage: UNK
     Route: 065
  6. ACEBUTOLOL HYDROCHLORIDE (UNKNOWN) [Suspect]
     Active Substance: ACEBUTOLOL HYDROCHLORIDE
     Indication: PREMEDICATION
     Dosage: UNK
     Route: 065
  7. EPINEPHRINE. [Suspect]
     Active Substance: EPINEPHRINE
     Indication: CARDIAC ARREST
     Dosage: REPEATED DOSES
     Route: 065
  8. CLONIDINE. [Suspect]
     Active Substance: CLONIDINE
     Indication: PREMEDICATION
     Dosage: UNK
     Route: 065
  9. SUFENTANIL (UNKNOWN) [Suspect]
     Active Substance: SUFENTANIL
     Indication: GENERAL ANAESTHESIA
     Dosage: UNK
     Route: 065
  10. ALPRAZOLAM (UNKNOWN) [Suspect]
     Active Substance: ALPRAZOLAM
     Indication: CARDIAC ARREST
     Dosage: UNK
     Route: 065

REACTIONS (7)
  - Cardiac arrest [Not Recovered/Not Resolved]
  - Stress cardiomyopathy [Not Recovered/Not Resolved]
  - Multiple organ dysfunction syndrome [Fatal]
  - Disseminated intravascular coagulation [Fatal]
  - Kounis syndrome [Not Recovered/Not Resolved]
  - Cardiomyopathy [Fatal]
  - Cardiogenic shock [Not Recovered/Not Resolved]
